FAERS Safety Report 8856369 (Version 2)
Quarter: 2012Q4

REPORT INFORMATION
  Report Type: Spontaneous
  Country: LT (occurrence: None)
  Receive Date: 20121019
  Receipt Date: 20121019
  Transmission Date: 20130627
  Serious: Yes (Other)
  Sender: FDA-Public Use
  Company Number: AUR-APL-2012-04416

PATIENT
  Age: 66 Year
  Sex: Female

DRUGS (2)
  1. SIMVASTATIN (SIMVASTATIN) [Suspect]
     Indication: DRUG USE FOR UNKNOWN INDICATION
     Dosage: 1 D
  2. ACETAMINOPHEN, DEXTROMETHORPHAN HYDROBROMIDE, AND PHENYLEPHRINE HYDROCHLORIDE [Suspect]
     Indication: FEVER
     Dosage: 6 Dosage forms, 1 D

REACTIONS (5)
  - Potentiating drug interaction [None]
  - Myocardial infarction [None]
  - Jaundice [None]
  - Aspartate aminotransferase increased [None]
  - Transaminases increased [None]
